FAERS Safety Report 14957323 (Version 6)
Quarter: 2018Q3

REPORT INFORMATION
  Report Type: Report from Study
  Country: IT (occurrence: IT)
  Receive Date: 20180531
  Receipt Date: 20180910
  Transmission Date: 20181010
  Serious: Yes (Hospitalization)
  Sender: FDA-Public Use
  Company Number: IT-B.I. PHARMACEUTICALS,INC./RIDGEFIELD-2018-BI-028196

PATIENT
  Age: 75 Year
  Sex: Male
  Weight: 75 kg

DRUGS (4)
  1. LASIX [Concomitant]
     Active Substance: FUROSEMIDE
     Route: 048
  2. LASIX [Concomitant]
     Active Substance: FUROSEMIDE
     Indication: PRODUCT USED FOR UNKNOWN INDICATION
     Route: 048
     Dates: end: 20180322
  3. SPIOLTO RESPIMAT [Suspect]
     Active Substance: OLODATEROL HYDROCHLORIDE\TIOTROPIUM BROMIDE MONOHYDRATE
     Indication: CHRONIC OBSTRUCTIVE PULMONARY DISEASE
     Route: 055
     Dates: start: 20180219
  4. AMLODIPIN [Concomitant]
     Active Substance: AMLODIPINE BESYLATE
     Indication: PRODUCT USED FOR UNKNOWN INDICATION
     Route: 048
     Dates: end: 20180322

REACTIONS (1)
  - Pneumonitis [Recovered/Resolved]

NARRATIVE: CASE EVENT DATE: 20180322
